FAERS Safety Report 11171104 (Version 2)
Quarter: 2021Q3

REPORT INFORMATION
  Report Type: Spontaneous
  Country: JP (occurrence: JP)
  Receive Date: 20150608
  Receipt Date: 20210712
  Transmission Date: 20211014
  Serious: Yes (Hospitalization)
  Sender: FDA-Public Use
  Company Number: JP-MYLANLABS-2015M1018444

PATIENT
  Age: 51 Year
  Sex: Female

DRUGS (3)
  1. LAMIVUDINE. [Suspect]
     Active Substance: LAMIVUDINE
     Indication: CHRONIC HEPATITIS B
     Dosage: 100 MILLIGRAM, QD
     Route: 065
     Dates: start: 200609, end: 200710
  2. ENTECAVIR. [Suspect]
     Active Substance: ENTECAVIR
     Indication: CHRONIC HEPATITIS B
     Dosage: 0.5 MILLIGRAM, QD
     Route: 065
     Dates: start: 200710
  3. TENOFOVIR DISOPROXIL FUMARATE. [Suspect]
     Active Substance: TENOFOVIR DISOPROXIL FUMARATE
     Indication: CHRONIC HEPATITIS B
     Dosage: 300 MILLIGRAM, QD
     Route: 065
     Dates: start: 201009, end: 201804

REACTIONS (2)
  - Pathogen resistance [Unknown]
  - Virologic failure [Unknown]
